FAERS Safety Report 22049279 (Version 1)
Quarter: 2023Q1

REPORT INFORMATION
  Report Type: Spontaneous
  Country: US (occurrence: None)
  Receive Date: 20230228
  Receipt Date: 20230228
  Transmission Date: 20230417
  Serious: Yes (unspecified)
  Sender: FDA-Public Use
  Company Number: None

PATIENT
  Age: 69 Year
  Sex: Female
  Weight: 63 kg

DRUGS (1)
  1. LORAZEPAM [Suspect]
     Active Substance: LORAZEPAM
     Indication: Anxiety
     Dates: start: 20160515, end: 20160614

REACTIONS (2)
  - Withdrawal syndrome [None]
  - Drug dependence [None]

NARRATIVE: CASE EVENT DATE: 20160615
